FAERS Safety Report 22167739 (Version 7)
Quarter: 2024Q1

REPORT INFORMATION
  Report Type: Spontaneous
  Country: GB (occurrence: GB)
  Receive Date: 20230403
  Receipt Date: 20240219
  Transmission Date: 20240410
  Serious: Yes (Hospitalization, Other)
  Sender: FDA-Public Use
  Company Number: GB-MYLANLABS-2023M1033732

PATIENT
  Age: 40 Year
  Sex: Female

DRUGS (2)
  1. CLOZARIL [Suspect]
     Active Substance: CLOZAPINE
     Indication: Borderline personality disorder
     Dosage: UNK
     Route: 048
     Dates: start: 20190107, end: 20230320
  2. CLOZARIL [Suspect]
     Active Substance: CLOZAPINE
     Indication: Schizophrenia

REACTIONS (10)
  - Hospitalisation [Unknown]
  - Leukopenia [Recovered/Resolved]
  - Neutropenia [Recovered/Resolved]
  - Eosinophilia [Recovered/Resolved]
  - Anaemia [Recovered/Resolved]
  - Therapy interrupted [Unknown]
  - Off label use [Unknown]
  - Vulvovaginal rash [Unknown]
  - Urinary tract infection [Unknown]
  - Leukocytosis [Recovered/Resolved]

NARRATIVE: CASE EVENT DATE: 20230320
